FAERS Safety Report 21146216 (Version 1)
Quarter: 2022Q3

REPORT INFORMATION
  Report Type: Spontaneous
  Country: CA (occurrence: CA)
  Receive Date: 20220729
  Receipt Date: 20220729
  Transmission Date: 20221026
  Serious: Yes (Death, Hospitalization)
  Sender: FDA-Public Use
  Company Number: CA-NOVARTISPH-NVSC2022CA169734

PATIENT
  Age: 67 Year
  Sex: Male

DRUGS (5)
  1. SANDOSTATIN LAR DEPOT [Suspect]
     Active Substance: OCTREOTIDE ACETATE
     Indication: Carcinoid tumour
     Dosage: 30 MG, QMO
     Route: 030
  2. SANDOSTATIN LAR DEPOT [Suspect]
     Active Substance: OCTREOTIDE ACETATE
  3. SANDOSTATIN LAR DEPOT [Suspect]
     Active Substance: OCTREOTIDE ACETATE
  4. HALOPERIDOL DECANOATE [Suspect]
     Active Substance: HALOPERIDOL DECANOATE
     Indication: Product used for unknown indication
     Dosage: 1 ML
     Route: 030
  5. HYDROMORPHONE HYDROCHLORIDE [Suspect]
     Active Substance: HYDROMORPHONE HYDROCHLORIDE
     Indication: Product used for unknown indication
     Dosage: 0.5 ML
     Route: 065

REACTIONS (11)
  - Body temperature increased [Fatal]
  - Death [Fatal]
  - Depressed mood [Fatal]
  - Dizziness [Fatal]
  - Feeling abnormal [Fatal]
  - Intestinal obstruction [Fatal]
  - Nausea [Fatal]
  - Oesophageal ulcer [Fatal]
  - Pallor [Fatal]
  - Carcinoid tumour [Fatal]
  - Malignant neoplasm progression [Fatal]
